FAERS Safety Report 25918924 (Version 1)
Quarter: 2025Q4

REPORT INFORMATION
  Report Type: Spontaneous
  Country: JP (occurrence: JP)
  Receive Date: 20251014
  Receipt Date: 20251014
  Transmission Date: 20260117
  Serious: Yes (Hospitalization)
  Sender: RANBAXY
  Company Number: JP-SUN PHARMACEUTICAL INDUSTRIES LTD-2025R1-529866

PATIENT
  Age: 60 Year
  Sex: Male

DRUGS (1)
  1. ILUMYA [Suspect]
     Active Substance: TILDRAKIZUMAB-ASMN
     Indication: Psoriasis
     Dosage: 100 MILLIGRAM /DOSE
     Route: 058
     Dates: start: 20250902

REACTIONS (1)
  - Intervertebral disc protrusion [Not Recovered/Not Resolved]

NARRATIVE: CASE EVENT DATE: 20250906
